FAERS Safety Report 7860154-1 (Version None)
Quarter: 2011Q4

REPORT INFORMATION
  Report Type: 
  Country: None (occurrence: None)
  Receive Date: 20111027
  Receipt Date: 20111025
  Transmission Date: 20120403
  Serious: Yes (Life-Threatening, Hospitalization, Other)
  Sender: FDA-Public Use
  Company Number: FI-PFIZER INC-2010031048

PATIENT
  Age: 55 Year
  Sex: Female

DRUGS (5)
  1. VARENICLINE TARTRATE [Suspect]
     Dosage: 0.5 MG, 2X/DAY
  2. VARENICLINE TARTRATE [Suspect]
     Dosage: 0.5 MG, 1X/DAY
  3. LEVOTHYROXINE SODIUM [Concomitant]
     Dosage: UNK
  4. PROPRANOLOL [Suspect]
     Dosage: UNK
  5. TELMISARTAN [Concomitant]
     Dosage: UNK

REACTIONS (4)
  - PULMONARY OEDEMA [None]
  - PHAEOCHROMOCYTOMA [None]
  - CARDIAC DISORDER [None]
  - DIARRHOEA [None]
